FAERS Safety Report 19665137 (Version 1)
Quarter: 2021Q3

REPORT INFORMATION
  Report Type: Report from Study
  Country: US (occurrence: US)
  Receive Date: 20210806
  Receipt Date: 20210806
  Transmission Date: 20211014
  Serious: No
  Sender: FDA-Public Use
  Company Number: US-ACADIA PHARMACEUTICALS INC.-ACA-2021-PIM-002608

PATIENT
  Age: 53 Year
  Sex: Male

DRUGS (10)
  1. VENLAFAXINE [Concomitant]
     Active Substance: VENLAFAXINE HYDROCHLORIDE
  2. ATROPINE SULFATE. [Concomitant]
     Active Substance: ATROPINE SULFATE
  3. CARBIDOPA/LEVODOPA [Concomitant]
     Active Substance: CARBIDOPA\LEVODOPA
  4. RIMANTADINE [Concomitant]
     Active Substance: RIMANTADINE HYDROCHLORIDE
  5. NUPLAZID [Suspect]
     Active Substance: PIMAVANSERIN TARTRATE
     Indication: PARKINSON^S DISEASE
     Dosage: 34 MILLIGRAM, QD
     Route: 048
     Dates: start: 20210420, end: 2021
  6. GLYCOPYRROLATE. [Concomitant]
     Active Substance: GLYCOPYRROLATE
  7. RASAGILINE. [Concomitant]
     Active Substance: RASAGILINE
  8. VASCEPA [Concomitant]
     Active Substance: ICOSAPENT ETHYL
  9. DONEPEZIL. [Concomitant]
     Active Substance: DONEPEZIL
  10. SELEGILINE [Concomitant]
     Active Substance: SELEGILINE

REACTIONS (2)
  - Illness [Not Recovered/Not Resolved]
  - Product dose omission issue [Not Recovered/Not Resolved]

NARRATIVE: CASE EVENT DATE: 20210713
